FAERS Safety Report 18321283 (Version 1)
Quarter: 2020Q3

REPORT INFORMATION
  Report Type: Spontaneous
  Country: BR (occurrence: BR)
  Receive Date: 20200928
  Receipt Date: 20200928
  Transmission Date: 20201103
  Serious: Yes (Other)
  Sender: FDA-Public Use
  Company Number: BR-ABBVIE-20P-020-3446738-00

PATIENT
  Age: 63 Year
  Sex: Female

DRUGS (7)
  1. SYNTHROID [Suspect]
     Active Substance: LEVOTHYROXINE SODIUM
     Route: 048
     Dates: start: 20200612, end: 20200612
  2. BENICAR [Concomitant]
     Active Substance: OLMESARTAN MEDOXOMIL
     Dosage: USED TO ADMINISTER OTHER, UNSPECIFIED, DOSAGES
     Dates: start: 2016
  3. SYNTHROID [Suspect]
     Active Substance: LEVOTHYROXINE SODIUM
     Indication: HYPOTHYROIDISM
     Dosage: DD: 137MCG DURING FASTING, STARTED LONG TIME AGO WITH UNKNOWN DOSAGE
     Route: 048
  4. SYNTHROID [Suspect]
     Active Substance: LEVOTHYROXINE SODIUM
     Dosage: DD: 137MCG DURING FASTING, STARTED LONG TIME AGO WITH UNKNOWN DOSAGE
     Route: 048
     Dates: start: 20200613
  5. BENICAR [Concomitant]
     Active Substance: OLMESARTAN MEDOXOMIL
     Indication: BLOOD PRESSURE ABNORMAL
     Route: 048
  6. GLIFAGE [Concomitant]
     Active Substance: METFORMIN HYDROCHLORIDE
     Indication: DIABETES MELLITUS MANAGEMENT
     Dosage: DD: 500MG AT NIGHT
     Route: 048
  7. GLIFAGE [Concomitant]
     Active Substance: METFORMIN HYDROCHLORIDE
     Dosage: DD: 1500MG AT NIGHT
     Route: 048

REACTIONS (5)
  - Cardiac arrest [Unknown]
  - Expired product administered [Recovered/Resolved]
  - Onychoclasis [Not Recovered/Not Resolved]
  - Incorrect dosage administered [Unknown]
  - Breast cancer [Recovering/Resolving]

NARRATIVE: CASE EVENT DATE: 20200612
